FAERS Safety Report 17157276 (Version 2)
Quarter: 2021Q2

REPORT INFORMATION
  Report Type: Spontaneous
  Country: GB (occurrence: GB)
  Receive Date: 20191216
  Receipt Date: 20210624
  Transmission Date: 20210716
  Serious: Yes (Hospitalization)
  Sender: FDA-Public Use
  Company Number: GB-ACCORD-165013

PATIENT
  Age: 64 Year
  Sex: Male
  Weight: 158.4 kg

DRUGS (10)
  1. IRBESARTAN. [Suspect]
     Active Substance: IRBESARTAN
     Indication: BLOOD PRESSURE MANAGEMENT
     Route: 048
     Dates: start: 20171204, end: 20191114
  2. OZEMPIC [Suspect]
     Active Substance: SEMAGLUTIDE
     Indication: WEIGHT CONTROL
     Route: 051
     Dates: start: 20190808, end: 20191114
  3. ALLOPURINOL. [Concomitant]
     Active Substance: ALLOPURINOL
  4. PIOGLITAZONE. [Concomitant]
     Active Substance: PIOGLITAZONE
  5. BEZAFIBRATE [Concomitant]
     Active Substance: BEZAFIBRATE
  6. METFORMIN [Concomitant]
     Active Substance: METFORMIN HYDROCHLORIDE
  7. GLICLAZIDE [Concomitant]
     Active Substance: GLICLAZIDE
  8. FUROSEMIDE. [Suspect]
     Active Substance: FUROSEMIDE
     Indication: DIURETIC THERAPY
     Dosage: IN THE MORNING
     Route: 048
     Dates: start: 20180927, end: 20181114
  9. IRBESARTAN. [Concomitant]
     Active Substance: IRBESARTAN
  10. METFORMIN [Suspect]
     Active Substance: METFORMIN HYDROCHLORIDE
     Indication: WEIGHT CONTROL
     Route: 048
     Dates: start: 20171204, end: 20191114

REACTIONS (3)
  - Vomiting [Recovering/Resolving]
  - Nausea [Recovering/Resolving]
  - Acute kidney injury [Recovering/Resolving]

NARRATIVE: CASE EVENT DATE: 20191101
